FAERS Safety Report 16262458 (Version 1)
Quarter: 2019Q2

REPORT INFORMATION
  Report Type: Report from Study
  Country: CA (occurrence: US)
  Receive Date: 20190501
  Receipt Date: 20190501
  Transmission Date: 20190711
  Serious: Yes (Other)
  Sender: FDA-Public Use
  Company Number: CA-BIOGEN-2019BI00683081

PATIENT
  Age: 58 Year
  Sex: Male

DRUGS (1)
  1. TECFIDERA [Suspect]
     Active Substance: DIMETHYL FUMARATE
     Indication: MULTIPLE SCLEROSIS
     Dosage: MAINTENANCE DOSE
     Route: 050
     Dates: start: 20150113

REACTIONS (1)
  - Monoclonal B-cell lymphocytosis [Unknown]

NARRATIVE: CASE EVENT DATE: 20181016
